FAERS Safety Report 16227985 (Version 1)
Quarter: 2019Q2

REPORT INFORMATION
  Report Type: Other
  Country: CA (occurrence: CA)
  Receive Date: 20190423
  Receipt Date: 20190423
  Transmission Date: 20190711
  Serious: Yes (Life-Threatening, Hospitalization, Other)
  Sender: FDA-Public Use
  Company Number: CA-APOTEX-2019AP012120

PATIENT
  Age: 13 Year
  Sex: Female
  Weight: 60 kg

DRUGS (2)
  1. ACETAMINOPHEN. [Suspect]
     Active Substance: ACETAMINOPHEN
     Indication: SUICIDAL IDEATION
     Dosage: UNK
     Route: 065
  2. ACETAMINOPHEN. [Suspect]
     Active Substance: ACETAMINOPHEN
     Dosage: UNK
     Route: 048

REACTIONS (21)
  - Hypotonia [Recovered/Resolved]
  - Unresponsive to stimuli [Recovered/Resolved]
  - Brain herniation [Recovered/Resolved]
  - Condition aggravated [Recovered/Resolved]
  - Intracranial pressure increased [Recovered/Resolved]
  - Mydriasis [Recovered/Resolved]
  - International normalised ratio increased [Recovered/Resolved]
  - Lethargy [Recovered/Resolved]
  - Areflexia [Recovered/Resolved]
  - Hypertonia [Recovered/Resolved]
  - Acute hepatic failure [Recovered/Resolved]
  - Blood creatinine increased [Recovered/Resolved]
  - Decerebrate posture [Recovered/Resolved]
  - Suicidal ideation [Recovered/Resolved]
  - VIth nerve paralysis [Recovered/Resolved]
  - Hepatotoxicity [Recovered/Resolved]
  - Brain oedema [Recovered/Resolved]
  - Intentional overdose [Recovered/Resolved]
  - Hypotension [Recovered/Resolved]
  - IIIrd nerve paralysis [Recovered/Resolved]
  - Metabolic encephalopathy [Recovered/Resolved]
